FAERS Safety Report 12614487 (Version 1)
Quarter: 2016Q3

REPORT INFORMATION
  Report Type: Spontaneous
  Country: US (occurrence: None)
  Receive Date: 20160801
  Receipt Date: 20160801
  Transmission Date: 20161109
  Serious: Yes (Other)
  Sender: FDA-Public Use
  Company Number: None

PATIENT
  Age: 53 Year
  Sex: Male
  Weight: 145.61 kg

DRUGS (1)
  1. LISINOPRIL. [Suspect]
     Active Substance: LISINOPRIL
     Indication: HYPERTENSION
     Route: 048
     Dates: start: 20160724, end: 20160727

REACTIONS (5)
  - Asthenia [None]
  - Feeling abnormal [None]
  - Product substitution issue [None]
  - Dizziness [None]
  - Hyperventilation [None]

NARRATIVE: CASE EVENT DATE: 20160725
